FAERS Safety Report 11854318 (Version 1)
Quarter: 2015Q4

REPORT INFORMATION
  Report Type: Spontaneous
  Country: GB (occurrence: GB)
  Receive Date: 20151221
  Receipt Date: 20151221
  Transmission Date: 20160305
  Serious: Yes (Other)
  Sender: FDA-Public Use
  Company Number: GB-JNJFOC-20151206659

PATIENT
  Age: 83 Year
  Sex: Male
  Weight: 78.46 kg

DRUGS (2)
  1. PARACETAMOL [Suspect]
     Active Substance: ACETAMINOPHEN
     Indication: FACIAL NEURALGIA
     Dosage: 500 MG X 8 PER DAY
     Route: 065
     Dates: start: 20151127
  2. PARACETAMOL [Suspect]
     Active Substance: ACETAMINOPHEN
     Route: 065

REACTIONS (1)
  - Dizziness exertional [Unknown]

NARRATIVE: CASE EVENT DATE: 20151129
